FAERS Safety Report 23329512 (Version 1)
Quarter: 2023Q4

REPORT INFORMATION
  Report Type: Spontaneous
  Country: US (occurrence: US)
  Receive Date: 20231222
  Receipt Date: 20231222
  Transmission Date: 20240110
  Serious: No
  Sender: FDA-Public Use
  Company Number: US-ABBVIE-5543183

PATIENT
  Sex: Female

DRUGS (4)
  1. SKYRIZI [Suspect]
     Active Substance: RISANKIZUMAB-RZAA
     Indication: Psoriasis
     Route: 058
  2. TRIAMCINOLONE [Concomitant]
     Active Substance: TRIAMCINOLONE
     Indication: Psoriasis
     Dosage: STRENGTH- 0.1 PERCENT
  3. HYDROCORTISONE [Concomitant]
     Active Substance: HYDROCORTISONE
     Indication: Psoriasis
     Dosage: STRENGTH- 2.5 PERCENT
  4. CALCIPOTRIENE [Concomitant]
     Active Substance: CALCIPOTRIENE
     Indication: Psoriasis
     Dosage: STRENGTH- 0.0005 %

REACTIONS (2)
  - Psoriasis [Not Recovered/Not Resolved]
  - Drug ineffective [Unknown]
